FAERS Safety Report 4413194-9 (Version None)
Quarter: 2004Q3

REPORT INFORMATION
  Report Type: 
  Country: None (occurrence: None)
  Receive Date: 20040802
  Receipt Date: 20040729
  Transmission Date: 20050211
  Serious: Yes (Hospitalization)
  Sender: FDA-Public Use
  Company Number: PHBS2004BR10106

PATIENT
  Age: 3 Month
  Sex: Male
  Weight: 6 kg

DRUGS (2)
  1. TRILEPTAL [Suspect]
     Route: 064
  2. NEVOLAR [Concomitant]
     Route: 064

REACTIONS (4)
  - DRUG EXPOSURE DURING PREGNANCY [None]
  - MENINGITIS NEONATAL [None]
  - MENINGITIS VIRAL [None]
  - PREMATURE BABY [None]
